FAERS Safety Report 6842619-4 (Version None)
Quarter: 2010Q3

REPORT INFORMATION
  Report Type: 
  Country: None (occurrence: None)
  Receive Date: 20100709
  Receipt Date: 20100625
  Transmission Date: 20110219
  Serious: Yes (Other)
  Sender: FDA-Public Use
  Company Number: GER/UKI/10/0013272

PATIENT
  Age: 66 Year
  Sex: Female
  Weight: 65 kg

DRUGS (6)
  1. OMEPRAZOLE [Suspect]
     Indication: PANCREATITIS
     Dosage: ORAL
     Route: 048
     Dates: start: 20090101
  2. RABEPRAZOLE SODIUM [Suspect]
     Indication: HIATUS HERNIA
     Dosage: 40 MG, ORAL
     Route: 048
     Dates: start: 20090101, end: 20090301
  3. ALFACALCIDOL (ALFACAKCIDOL) [Concomitant]
  4. ATENOLOL [Concomitant]
  5. CALCICHEW (CALCIUM CARBONATE) [Concomitant]
  6. PREMARIN [Concomitant]

REACTIONS (1)
  - HYPOMAGNESAEMIA [None]
